FAERS Safety Report 5848003-4 (Version None)
Quarter: 2008Q3

REPORT INFORMATION
  Report Type: 
  Country: None (occurrence: None)
  Receive Date: 20080814
  Receipt Date: 20080804
  Transmission Date: 20090109
  Serious: Yes (Hospitalization)
  Sender: FDA-Public Use
  Company Number: 2008-181648-NL

PATIENT
  Age: 42 Year
  Sex: Female

DRUGS (3)
  1. MENOTROPINS [Suspect]
     Dosage: DF
     Dates: start: 20070101, end: 20080101
  2. CLOMIFENE [Suspect]
     Indication: INFERTILITY FEMALE
     Dosage: DF
  3. FOLLITROPIN ALFA [Suspect]
     Indication: INFERTILITY FEMALE
     Dosage: DF
     Dates: start: 19970101

REACTIONS (1)
  - BREAST CANCER FEMALE [None]
